FAERS Safety Report 14741112 (Version 1)
Quarter: 2018Q2

REPORT INFORMATION
  Report Type: Spontaneous
  Country: US (occurrence: US)
  Receive Date: 20180404
  Receipt Date: 20180404
  Transmission Date: 20180711
  Serious: Yes (Life-Threatening, Hospitalization)
  Sender: FDA-Public Use
  Company Number: None

PATIENT
  Age: 44 Year
  Sex: Female
  Weight: 94.8 kg

DRUGS (5)
  1. LEVOTHYROXINE. [Concomitant]
     Active Substance: LEVOTHYROXINE
  2. ATORVASTATIN [Concomitant]
     Active Substance: ATORVASTATIN
  3. METOPROLOL 5MG [Concomitant]
     Active Substance: METOPROLOL
     Indication: RHEUMATOID ARTHRITIS
     Route: 048
     Dates: start: 20140101, end: 20171215
  4. XELJANZ [Suspect]
     Active Substance: TOFACITINIB CITRATE
     Indication: RHEUMATOID ARTHRITIS
     Route: 048
     Dates: start: 20140101, end: 20171215
  5. PREDNISONE. [Concomitant]
     Active Substance: PREDNISONE

REACTIONS (5)
  - Pneumonia [None]
  - Staphylococcal infection [None]
  - Respiratory disorder [None]
  - Sepsis [None]
  - Diabetes mellitus [None]

NARRATIVE: CASE EVENT DATE: 20171215
